FAERS Safety Report 18462820 (Version 1)
Quarter: 2020Q4

REPORT INFORMATION
  Report Type: Spontaneous
  Country: US (occurrence: US)
  Receive Date: 20201104
  Receipt Date: 20201104
  Transmission Date: 20210114
  Serious: Yes (Other)
  Sender: FDA-Public Use
  Company Number: US-PFIZER INC-2020426302

PATIENT
  Age: 79 Year
  Sex: Female
  Weight: 95.25 kg

DRUGS (2)
  1. GABAPENTIN. [Suspect]
     Active Substance: GABAPENTIN
     Indication: NEUROPATHY PERIPHERAL
     Dosage: A MUCH LOWER DOSE
  2. GABAPENTIN. [Suspect]
     Active Substance: GABAPENTIN
     Indication: PAIN
     Dosage: 600 MG, 3X/DAY

REACTIONS (10)
  - Drug ineffective for unapproved indication [Unknown]
  - Sleep disorder [Unknown]
  - Atrial fibrillation [Unknown]
  - Off label use [Unknown]
  - Back pain [Unknown]
  - Dry mouth [Unknown]
  - Muscle spasms [Unknown]
  - Fall [Unknown]
  - Cardiac failure congestive [Unknown]
  - Back injury [Unknown]
